FAERS Safety Report 5585257-6 (Version None)
Quarter: 2008Q1

REPORT INFORMATION
  Report Type: 
  Country: None (occurrence: None)
  Receive Date: 20080109
  Receipt Date: 20080104
  Transmission Date: 20080703
  Serious: Yes (Life-Threatening, Other)
  Sender: FDA-Public Use
  Company Number: NL-BAYER-200810295GPV

PATIENT
  Age: 80 Year
  Sex: Male
  Weight: 62 kg

DRUGS (5)
  1. NEXAVAR [Suspect]
     Indication: THYROID CANCER
     Dosage: TOTAL DAILY DOSE: 800 MG  UNIT DOSE: 200 MG
     Route: 048
     Dates: start: 20071201, end: 20071210
  2. NEXAVAR [Suspect]
     Dosage: TOTAL DAILY DOSE: 200 MG  UNIT DOSE: 200 MG
     Route: 048
     Dates: start: 20071222, end: 20071223
  3. LIDOCAIN [Suspect]
     Indication: MUCOSAL INFLAMMATION
     Route: 065
     Dates: start: 20071207, end: 20071210
  4. LEVOTHYROXINE SODIUM [Concomitant]
     Indication: HYPOTHYROIDISM
     Route: 048
     Dates: start: 20050201
  5. BOCASAN (SODIUM PERBORATE) [Concomitant]
     Indication: MUCOSAL INFLAMMATION
     Route: 065
     Dates: start: 20071207, end: 20071210

REACTIONS (6)
  - ANGIOEDEMA [None]
  - CHILLS [None]
  - FACE OEDEMA [None]
  - LIP SWELLING [None]
  - PHARYNGEAL OEDEMA [None]
  - SWOLLEN TONGUE [None]
